FAERS Safety Report 5450957-5 (Version None)
Quarter: 2007Q3

REPORT INFORMATION
  Report Type: 
  Country: None (occurrence: None)
  Receive Date: 20070911
  Receipt Date: 20070831
  Transmission Date: 20080115
  Serious: Yes (Disabling)
  Sender: FDA-Public Use
  Company Number: 2007S1000085

PATIENT
  Age: 2 Day
  Sex: Male
  Weight: 0.72 kg

DRUGS (4)
  1. NITRIC OXIDE [Suspect]
     Indication: LUNG DISORDER
     Dosage: 5 PPM; CONT; INH
     Route: 055
     Dates: start: 20070415, end: 20070507
  2. NITRIC OXIDE [Suspect]
     Indication: PROPHYLAXIS
     Dosage: 5 PPM; CONT; INH
     Route: 055
     Dates: start: 20070415, end: 20070507
  3. AMPICILLIN [Concomitant]
  4. GENTAMICIN [Concomitant]

REACTIONS (2)
  - INTRAVENTRICULAR HAEMORRHAGE NEONATAL [None]
  - RESPIRATORY DISTRESS [None]
